FAERS Safety Report 13671183 (Version 1)
Quarter: 2017Q2

REPORT INFORMATION
  Report Type: Spontaneous
  Country: US (occurrence: US)
  Receive Date: 20170620
  Receipt Date: 20170620
  Transmission Date: 20170830
  Serious: No
  Sender: FDA-Public Use
  Company Number: US-ROCHE-1356857

PATIENT
  Sex: Female
  Weight: 61.29 kg

DRUGS (6)
  1. MIRALAX [Concomitant]
     Active Substance: POLYETHYLENE GLYCOL 3350
  2. TYLENOL [Concomitant]
     Active Substance: ACETAMINOPHEN
  3. XELODA [Suspect]
     Active Substance: CAPECITABINE
     Indication: RECTOSIGMOID CANCER
     Dosage: 3 BID X14 DAYS
     Route: 048
     Dates: start: 20131203
  4. XELODA [Suspect]
     Active Substance: CAPECITABINE
     Dosage: 7 DAYS ON AND 7 DAYS OFF
     Route: 048
  5. STIVARGA [Concomitant]
     Active Substance: REGORAFENIB
  6. AMLODIPINE [Concomitant]
     Active Substance: AMLODIPINE BESYLATE

REACTIONS (1)
  - Rash [Unknown]
